FAERS Safety Report 17722390 (Version 5)
Quarter: 2022Q2

REPORT INFORMATION
  Report Type: Spontaneous
  Country: US (occurrence: US)
  Receive Date: 20200429
  Receipt Date: 20220519
  Transmission Date: 20220721
  Serious: No
  Sender: FDA-Public Use
  Company Number: US-PFIZER INC-2020171739

PATIENT
  Age: 62 Year
  Sex: Female

DRUGS (2)
  1. XELJANZ XR [Suspect]
     Active Substance: TOFACITINIB CITRATE
     Indication: Rheumatoid arthritis
     Dosage: 11 MG DAILY, (TAKE 1 TABLET BY MOUTH EVERY DAY)
     Route: 048
  2. XELJANZ XR [Suspect]
     Active Substance: TOFACITINIB CITRATE
     Indication: Fibromyalgia

REACTIONS (5)
  - Arthralgia [Unknown]
  - Mobility decreased [Unknown]
  - Pain [Unknown]
  - Fibromyalgia [Unknown]
  - Memory impairment [Unknown]
